FAERS Safety Report 14601063 (Version 1)
Quarter: 2018Q1

REPORT INFORMATION
  Report Type: Spontaneous
  Country: GB (occurrence: GB)
  Receive Date: 20180305
  Receipt Date: 20180305
  Transmission Date: 20180509
  Serious: Yes (Hospitalization, Other)
  Sender: FDA-Public Use
  Company Number: GB-009507513-1711GBR003474

PATIENT
  Age: 71 Year
  Sex: Female

DRUGS (3)
  1. KEYTRUDA [Suspect]
     Active Substance: PEMBROLIZUMAB
     Indication: LUNG ADENOCARCINOMA
     Dosage: 1ST CYCLE
     Dates: start: 20170919, end: 20171106
  2. KEYTRUDA [Suspect]
     Active Substance: PEMBROLIZUMAB
     Indication: LUNG NEOPLASM MALIGNANT
  3. OMEPRAZOLE. [Concomitant]
     Active Substance: OMEPRAZOLE
     Dosage: 20 MG, QD

REACTIONS (3)
  - Pneumonia [Recovering/Resolving]
  - Hepatitis acute [Recovered/Resolved]
  - Liver function test abnormal [Unknown]

NARRATIVE: CASE EVENT DATE: 20171003
